FAERS Safety Report 9541641 (Version 3)
Quarter: 2013Q4

REPORT INFORMATION
  Report Type: Report from Study
  Country: JP (occurrence: JP)
  Receive Date: 20130923
  Receipt Date: 20131111
  Transmission Date: 20140711
  Serious: Yes (Hospitalization)
  Sender: FDA-Public Use
  Company Number: JP-JNJFOC-20130909790

PATIENT
  Age: 76 Year
  Sex: Male

DRUGS (9)
  1. STELARA [Suspect]
     Indication: PSORIASIS
     Route: 058
     Dates: start: 20130729
  2. STELARA [Suspect]
     Indication: PSORIASIS
     Route: 058
     Dates: start: 20130218, end: 20130218
  3. STELARA [Suspect]
     Indication: PSORIASIS
     Route: 058
     Dates: start: 20121126, end: 20121126
  4. STELARA [Suspect]
     Indication: PSORIASIS
     Route: 058
     Dates: start: 20121029, end: 20121029
  5. ZESULAN [Concomitant]
     Indication: PSORIASIS
     Route: 048
  6. NERISONA [Concomitant]
     Indication: PSORIASIS
     Route: 061
  7. DOVONEX [Concomitant]
     Indication: PSORIASIS
     Route: 061
  8. PETROLATUM SALICYLATE [Concomitant]
     Indication: PSORIASIS
     Route: 061
  9. DERMOVATE [Concomitant]
     Indication: PSORIASIS
     Route: 061

REACTIONS (1)
  - Pyelonephritis [Recovered/Resolved]
